FAERS Safety Report 23525640 (Version 2)
Quarter: 2024Q2

REPORT INFORMATION
  Report Type: Report from Study
  Country: US (occurrence: US)
  Receive Date: 20240215
  Receipt Date: 20240415
  Transmission Date: 20240716
  Serious: Yes (Other)
  Sender: FDA-Public Use
  Company Number: US-JNJFOC-20240218342

PATIENT
  Age: 50 Year
  Sex: Male

DRUGS (3)
  1. SPRAVATO [Suspect]
     Active Substance: ESKETAMINE
     Indication: Depression
     Dates: start: 20240202, end: 20240202
  2. SPRAVATO [Suspect]
     Active Substance: ESKETAMINE
     Dates: start: 20240205, end: 20240205
  3. SPRAVATO [Suspect]
     Active Substance: ESKETAMINE
     Dates: end: 202403

REACTIONS (3)
  - Hallucination, visual [Unknown]
  - Autoscopy [Unknown]
  - Fatigue [Unknown]

NARRATIVE: CASE EVENT DATE: 20240202
